FAERS Safety Report 9457944 (Version 1)
Quarter: 2013Q3

REPORT INFORMATION
  Report Type: Spontaneous
  Country: US (occurrence: US)
  Receive Date: 20130814
  Receipt Date: 20130814
  Transmission Date: 20140515
  Serious: No
  Sender: FDA-Public Use
  Company Number: US-B.I. PHARMACEUTICALS,INC./RIDGEFIELD-2013-BI-23285BP

PATIENT
  Age: 86 Year
  Sex: Female

DRUGS (13)
  1. COMBIVENT [Suspect]
     Indication: CHRONIC OBSTRUCTIVE PULMONARY DISEASE
     Dosage: STRENGTH: 20 MCG / 100 MCG; DAILY DOSE: 80 MCG/ 400 MCG
     Route: 055
     Dates: start: 201305
  2. HYDROCHLOROTHIAZIDE [Concomitant]
     Route: 048
  3. VITAMIN B COMPLEX [Concomitant]
     Route: 048
  4. GLUCOSAMINE [Concomitant]
     Route: 048
  5. MULTIVITAMIN [Concomitant]
     Route: 048
  6. LEVOTHYROXINE [Concomitant]
     Route: 048
  7. ATORVASTATIN [Concomitant]
     Route: 048
  8. CRANBERRY PILL [Concomitant]
     Route: 048
  9. ALENDRONATE [Concomitant]
     Route: 048
  10. VITAMIN D [Concomitant]
     Route: 048
  11. CLOPIDOGREL [Concomitant]
     Route: 048
  12. ASPIRIN [Concomitant]
     Route: 048
  13. CARDIA [Concomitant]
     Route: 048

REACTIONS (2)
  - Cough [Not Recovered/Not Resolved]
  - Urinary tract infection [Not Recovered/Not Resolved]
